FAERS Safety Report 4714209-0 (Version None)
Quarter: 2005Q2

REPORT INFORMATION
  Report Type: 
  Country: None (occurrence: None)
  Receive Date: 20050630
  Receipt Date: 20041216
  Transmission Date: 20051028
  Serious: Yes (Disabling)
  Sender: FDA-Public Use
  Company Number: WAES 0412USA02086

PATIENT
  Age: 79 Year
  Sex: Female

DRUGS (3)
  1. HYZAAR [Suspect]
     Indication: HYPERTENSION
     Dosage: 100-25 MG/DAILY/PO
     Route: 048
     Dates: start: 20030101, end: 20041215
  2. PREVACID [Concomitant]
  3. TOPROL-XL [Concomitant]

REACTIONS (1)
  - GOUT [None]
